FAERS Safety Report 5518973-2 (Version None)
Quarter: 2007Q4

REPORT INFORMATION
  Report Type: 
  Country: None (occurrence: None)
  Receive Date: 20071116
  Receipt Date: 20071105
  Transmission Date: 20080405
  Serious: Yes (Other)
  Sender: FDA-Public Use
  Company Number: PHHO2007BR18623

PATIENT
  Age: 63 Year
  Sex: Female
  Weight: 57 kg

DRUGS (2)
  1. DIOVAN AMLO [Suspect]
     Indication: HYPERTENSION
     Dosage: 80/5MG DAILY
     Route: 048
     Dates: start: 20061101
  2. AAS [Concomitant]

REACTIONS (6)
  - EYE DISCHARGE [None]
  - EYE PRURITUS [None]
  - EYE SWELLING [None]
  - HYPERSENSITIVITY [None]
  - OCULAR HYPERAEMIA [None]
  - VISION BLURRED [None]
